FAERS Safety Report 22333023 (Version 1)
Quarter: 2023Q2

REPORT INFORMATION
  Report Type: Spontaneous
  Country: ES (occurrence: ES)
  Receive Date: 20230517
  Receipt Date: 20230517
  Transmission Date: 20230722
  Serious: Yes (Other)
  Sender: FDA-Public Use
  Company Number: None

PATIENT
  Age: 55 Year
  Sex: Female

DRUGS (9)
  1. IXEKIZUMAB [Suspect]
     Active Substance: IXEKIZUMAB
     Indication: Pustular psoriasis
     Dosage: UNK UNK, OTHER (EVERY 28 DAYS)
     Route: 065
     Dates: start: 20220105
  2. ACETAMINOPHEN [Concomitant]
     Active Substance: ACETAMINOPHEN
     Indication: Product used for unknown indication
     Dosage: 1 G, UNKNOWN
     Route: 048
     Dates: start: 20180910
  3. VALTREX [Concomitant]
     Active Substance: VALACYCLOVIR HYDROCHLORIDE
     Indication: Product used for unknown indication
     Dosage: 500 MG, DAILY
     Route: 048
     Dates: start: 20200117
  4. ZOFRAN [Concomitant]
     Active Substance: ONDANSETRON HYDROCHLORIDE
     Indication: Product used for unknown indication
     Dosage: 4 MG, UNKNOWN
     Route: 048
     Dates: start: 20230307
  5. DECLOBAN [Concomitant]
     Indication: Product used for unknown indication
     Dosage: 500 MG (1 APPLICATION), DAILY
     Route: 061
     Dates: start: 20180202
  6. IBUPROFENO TEVA [Concomitant]
     Indication: Product used for unknown indication
     Dosage: 400 MG, TID
     Route: 048
     Dates: start: 20230307
  7. OMEPRAZOL R [Concomitant]
     Indication: Product used for unknown indication
     Dosage: 20 MG, UNKNOWN
     Route: 048
     Dates: start: 20230224
  8. METOCLOPRAMIDA ACCORD [Concomitant]
     Indication: Product used for unknown indication
     Dosage: 10 MG, UNKNOWN
     Route: 048
     Dates: start: 20230307
  9. DIAZEPAM [Concomitant]
     Active Substance: DIAZEPAM
     Indication: Anxiety
     Dosage: 5 MG, DAILY
     Route: 048
     Dates: start: 20180713

REACTIONS (1)
  - Cervix neoplasm [Unknown]

NARRATIVE: CASE EVENT DATE: 20230307
